FAERS Safety Report 9801465 (Version 1)
Quarter: 2014Q1

REPORT INFORMATION
  Report Type: Spontaneous
  Country: SE (occurrence: SE)
  Receive Date: 20140107
  Receipt Date: 20140107
  Transmission Date: 20141002
  Serious: Yes (Life-Threatening, Hospitalization)
  Sender: FDA-Public Use
  Company Number: SE-ACTAVIS-2013-24257

PATIENT
  Age: 60 Year
  Sex: Male

DRUGS (1)
  1. METFORMIN (UNKNOWN) [Suspect]
     Indication: DIABETES MELLITUS
     Dosage: UNK
     Route: 065

REACTIONS (5)
  - Coma [Recovering/Resolving]
  - Toxicity to various agents [Recovering/Resolving]
  - Pneumothorax [Recovering/Resolving]
  - Lactic acidosis [Recovering/Resolving]
  - Loss of consciousness [Recovering/Resolving]
